FAERS Safety Report 5259381-1 (Version None)
Quarter: 2007Q1

REPORT INFORMATION
  Report Type: 
  Country: None (occurrence: None)
  Receive Date: 20070305
  Receipt Date: 20070219
  Transmission Date: 20070707
  Serious: Yes (Life-Threatening, Disabling)
  Sender: FDA-Public Use
  Company Number: OSCN-PR-0702S-0078

PATIENT
  Age: 80 Year
  Sex: Male

DRUGS (1)
  1. OMNISCAN [Suspect]
     Indication: RENAL FAILURE
     Dosage: 30 M, SINGLE DOSE, I.A.
     Dates: start: 20061110, end: 20061110

REACTIONS (2)
  - MULTI-ORGAN FAILURE [None]
  - NEPHROGENIC FIBROSING DERMOPATHY [None]
